FAERS Safety Report 25353953 (Version 2)
Quarter: 2025Q2

REPORT INFORMATION
  Report Type: Spontaneous
  Country: US (occurrence: US)
  Receive Date: 20250523
  Receipt Date: 20250530
  Transmission Date: 20250716
  Serious: Yes (Other)
  Sender: PFIZER
  Company Number: US-PFIZER INC-PV202500061728

PATIENT
  Age: 58 Year
  Sex: Male

DRUGS (7)
  1. DAPTOMYCIN [Suspect]
     Active Substance: DAPTOMYCIN
     Indication: Staphylococcal infection
  2. DAPTOMYCIN [Suspect]
     Active Substance: DAPTOMYCIN
     Indication: Endocarditis
  3. CEFTAROLINE [Concomitant]
     Active Substance: CEFTAROLINE
     Indication: Endocarditis
  4. CEFTAROLINE [Concomitant]
     Active Substance: CEFTAROLINE
     Indication: Staphylococcal infection
  5. WARFARIN [Concomitant]
     Active Substance: WARFARIN
  6. HEPARIN [Concomitant]
     Active Substance: HEPARIN SODIUM
  7. VITAMIN K [Concomitant]
     Active Substance: PHYTONADIONE

REACTIONS (1)
  - Cutaneous vasculitis [Recovered/Resolved]
